FAERS Safety Report 4597087-2 (Version None)
Quarter: 2005Q1

REPORT INFORMATION
  Report Type: 
  Country: None (occurrence: None)
  Receive Date: 20050302
  Receipt Date: 20041115
  Transmission Date: 20050727
  Serious: Yes (Life-Threatening, Hospitalization, Disabling, Other)
  Sender: FDA-Public Use
  Company Number: US-MERCK-0411USA02571

PATIENT
  Age: 71 Year
  Sex: Male
  Weight: 103 kg

DRUGS (7)
  1. VIOXX [Suspect]
     Indication: INTERVERTEBRAL DISC DEGENERATION
     Route: 048
     Dates: start: 20011008, end: 20020301
  2. VIOXX [Suspect]
     Indication: BACK PAIN
     Route: 048
     Dates: start: 20011008, end: 20020301
  3. ACCUPRIL [Concomitant]
     Route: 065
  4. HYDROCHLOROTHIAZIDE [Concomitant]
     Route: 065
  5. POTASSIUM (UNSPECIFIED) [Concomitant]
     Route: 065
  6. ALLEGRA [Concomitant]
     Route: 065
  7. CELEBREX [Concomitant]
     Route: 065
     Dates: start: 20011101

REACTIONS (1)
  - ACUTE MYOCARDIAL INFARCTION [None]
